FAERS Safety Report 25676753 (Version 2)
Quarter: 2025Q3

REPORT INFORMATION
  Report Type: Report from Study
  Country: US (occurrence: US)
  Receive Date: 20250813
  Receipt Date: 20250821
  Transmission Date: 20251021
  Serious: Yes (Other)
  Sender: TRAVERE THERAPEUTICS
  Company Number: US-TRAVERE-2025TVT01360

PATIENT
  Age: 60 Year
  Sex: Male

DRUGS (13)
  1. FILSPARI [Suspect]
     Active Substance: SPARSENTAN
     Indication: IgA nephropathy
     Route: 048
     Dates: start: 20250322
  2. ATORVASTATIN [Concomitant]
     Active Substance: ATORVASTATIN
  3. CARDURA [Concomitant]
     Active Substance: DOXAZOSIN MESYLATE
  4. HYDRALAZINE [Concomitant]
     Active Substance: HYDRALAZINE HYDROCHLORIDE
  5. HYDROCHLOROTHIAZIDE [Concomitant]
     Active Substance: HYDROCHLOROTHIAZIDE
  6. ASPIRIN [Concomitant]
     Active Substance: ASPIRIN
  7. FABHALTA [Concomitant]
     Active Substance: IPTACOPAN HYDROCHLORIDE
  8. FLONASE [Concomitant]
     Active Substance: FLUTICASONE PROPIONATE
  9. FISH OIL [Concomitant]
     Active Substance: FISH OIL
  10. LOSARTAN POTASSIUM [Concomitant]
     Active Substance: LOSARTAN POTASSIUM
  11. METOPROLOL SUCCINATE [Concomitant]
     Active Substance: METOPROLOL SUCCINATE
  12. PAROXETINE [Concomitant]
     Active Substance: PAROXETINE
  13. PROTONIX [Concomitant]
     Active Substance: PANTOPRAZOLE SODIUM

REACTIONS (7)
  - Craniofacial fracture [Unknown]
  - Loss of consciousness [Unknown]
  - Hypotension [Unknown]
  - Blood glucose decreased [Unknown]
  - Contusion [Unknown]
  - Fall [Unknown]
  - Contraindicated product administered [Unknown]

NARRATIVE: CASE EVENT DATE: 20250428
